FAERS Safety Report 20778316 (Version 1)
Quarter: 2022Q2

REPORT INFORMATION
  Report Type: Spontaneous
  Country: US (occurrence: US)
  Receive Date: 20220503
  Receipt Date: 20220503
  Transmission Date: 20220721
  Serious: Yes (Other)
  Sender: FDA-Public Use
  Company Number: US-Waylis Therapeutics LLC-ATNAHS20220405380

PATIENT
  Age: 47 Year
  Sex: Female

DRUGS (3)
  1. VALIUM [Suspect]
     Active Substance: DIAZEPAM
     Indication: Product used for unknown indication
  2. DUPIXENT [Suspect]
     Active Substance: DUPILUMAB
     Indication: Dermatitis atopic
     Route: 050
     Dates: start: 20200212
  3. DUPIXENT [Suspect]
     Active Substance: DUPILUMAB
     Dosage: EVERY OTHER WEEK
     Route: 050
     Dates: start: 202002

REACTIONS (8)
  - Renal cancer [Unknown]
  - Peripheral swelling [Recovered/Resolved]
  - Abnormal weight gain [Recovered/Resolved]
  - Drug hypersensitivity [Unknown]
  - Dermatitis atopic [Not Recovered/Not Resolved]
  - Erythema [Recovered/Resolved]
  - Skin exfoliation [Recovered/Resolved]
  - Pruritus [Recovered/Resolved]

NARRATIVE: CASE EVENT DATE: 20210101
